FAERS Safety Report 9530187 (Version 1)
Quarter: 2013Q3

REPORT INFORMATION
  Report Type: Spontaneous
  Country: FR (occurrence: FR)
  Receive Date: 20130917
  Receipt Date: 20130917
  Transmission Date: 20140515
  Serious: Yes (Hospitalization)
  Sender: FDA-Public Use
  Company Number: FR-PFIZER INC-2013263670

PATIENT
  Age: 77 Year
  Sex: Female

DRUGS (6)
  1. CADUET [Suspect]
     Dosage: AMLODIPINE BESILATE 5 MG/ATORVASTATIN CALCIUM 10 MG, 1 DF DAILY
     Route: 048
  2. EBIXA [Suspect]
     Indication: DEMENTIA ALZHEIMER^S TYPE
     Dosage: 20 MG, DAILY
     Route: 048
     Dates: start: 201007
  3. REMINYL [Suspect]
     Indication: DEMENTIA ALZHEIMER^S TYPE
     Dosage: 16 MG, DAILY
     Route: 048
     Dates: end: 201110
  4. SEROPLEX [Suspect]
     Dosage: 5 MG, DAILY
     Route: 048
  5. ATARAX [Suspect]
     Dosage: 25 MG, DAILY
     Route: 048
  6. NISISCO [Suspect]
     Dosage: VALSARTAN 80 MG/ HYDROCHLOROTHIAZIDE 12.5 MG,1 DF DAILY
     Route: 048

REACTIONS (3)
  - Pulmonary embolism [Recovered/Resolved]
  - Dizziness [Unknown]
  - Chest pain [Unknown]
